FAERS Safety Report 8206246-9 (Version None)
Quarter: 2012Q1

REPORT INFORMATION
  Report Type: 
  Country: None (occurrence: None)
  Receive Date: 20120313
  Receipt Date: 20120309
  Transmission Date: 20120608
  Serious: Yes (Death, Hospitalization, Other)
  Sender: FDA-Public Use
  Company Number: PHEH2012US004272

PATIENT
  Sex: Female

DRUGS (1)
  1. AFINITOR [Suspect]
     Indication: ABDOMINAL PAIN
     Dosage: 5 MG, DAILY
     Route: 048
     Dates: start: 20120213

REACTIONS (4)
  - CARDIAC DISORDER [None]
  - RENAL FAILURE CHRONIC [None]
  - ATRIAL FIBRILLATION [None]
  - CARDIAC ARREST [None]
